FAERS Safety Report 8132133-0 (Version None)
Quarter: 2012Q1

REPORT INFORMATION
  Report Type: 
  Country: None (occurrence: None)
  Receive Date: 20120213
  Receipt Date: 20120207
  Transmission Date: 20120608
  Serious: Yes (Other)
  Sender: FDA-Public Use
  Company Number: US-PFIZER INC-2012034590

PATIENT
  Sex: Female
  Weight: 88 kg

DRUGS (9)
  1. KLONOPIN [Concomitant]
     Indication: PANIC ATTACK
     Dosage: 1 MG, 2X/DAY
  2. AMBIEN [Concomitant]
     Indication: INSOMNIA
     Dosage: 10 MG, DAILY
  3. EFFEXOR XR [Suspect]
     Dosage: 175 MG, DAILY
  4. KLONOPIN [Concomitant]
     Indication: ANXIETY
  5. ZANAFLEX [Concomitant]
     Indication: MUSCLE SPASMS
     Dosage: 4 MG, 3X/DAY
     Dates: start: 20111101
  6. EFFEXOR XR [Suspect]
     Dosage: 75 MG, DAILY
  7. XANAX [Suspect]
     Dosage: UNK
     Dates: start: 20050101
  8. EFFEXOR XR [Suspect]
     Indication: DEPRESSION
     Dosage: 75 MG, DAILY
     Dates: start: 20040101
  9. TRAMADOL [Concomitant]
     Indication: ARTHRITIS
     Dosage: UNK,2X/DAY

REACTIONS (13)
  - BLOOD PRESSURE INCREASED [None]
  - BLOOD CHOLESTEROL INCREASED [None]
  - HALLUCINATION [None]
  - CONVULSION [None]
  - BLOOD TRIGLYCERIDES INCREASED [None]
  - SEXUAL DYSFUNCTION [None]
  - MOBILITY DECREASED [None]
  - PARAESTHESIA [None]
  - ANGER [None]
  - WITHDRAWAL SYNDROME [None]
  - WEIGHT INCREASED [None]
  - EMOTIONAL POVERTY [None]
  - CRYING [None]
